FAERS Safety Report 17265680 (Version 3)
Quarter: 2020Q1

REPORT INFORMATION
  Report Type: Spontaneous
  Country: US (occurrence: US)
  Receive Date: 20200114
  Receipt Date: 20200330
  Transmission Date: 20200409
  Serious: No
  Sender: FDA-Public Use
  Company Number: US-HTU-2019US020036

PATIENT
  Age: 66 Year
  Sex: Female

DRUGS (2)
  1. VALCHLOR [Suspect]
     Active Substance: MECHLORETHAMINE
     Dosage: UNK, QD
     Route: 061
     Dates: start: 20200106
  2. VALCHLOR [Suspect]
     Active Substance: MECHLORETHAMINE
     Indication: CUTANEOUS T-CELL LYMPHOMA
     Dosage: UNK, QOD
     Route: 061
     Dates: start: 20191126, end: 20200103

REACTIONS (7)
  - Application site papules [Unknown]
  - Off label use [Unknown]
  - Application site erythema [Unknown]
  - Application site pruritus [Recovered/Resolved]
  - Drug hypersensitivity [Unknown]
  - Skin discolouration [Unknown]
  - Application site swelling [Unknown]

NARRATIVE: CASE EVENT DATE: 20191229
